FAERS Safety Report 11809766 (Version 4)
Quarter: 2016Q2

REPORT INFORMATION
  Report Type: Spontaneous
  Country: BR (occurrence: BR)
  Receive Date: 20151208
  Receipt Date: 20160525
  Transmission Date: 20160815
  Serious: Yes (Hospitalization, Other)
  Sender: FDA-Public Use
  Company Number: BR-PFIZER INC-2015411160

PATIENT
  Age: 76 Year
  Sex: Female
  Weight: 94 kg

DRUGS (5)
  1. SUTENT [Suspect]
     Active Substance: SUNITINIB MALATE
     Dosage: 50 MG, CYCLIC (2 TABLETS OF 25MG DAILY, TOOK 14 TABLETS AND STOPPED FOR 2 WEEKS)
     Route: 048
     Dates: start: 201508
  2. METFORMIN [Concomitant]
     Active Substance: METFORMIN HYDROCHLORIDE
     Indication: DIABETES MELLITUS
     Dosage: 1 TABLET (850MG) AFTER LUNCH
  3. VASOPRIL /00574902/ [Concomitant]
     Indication: HYPERTENSION
     Dosage: 1 TABLET AFTER LUNCH
  4. SUTENT [Suspect]
     Active Substance: SUNITINIB MALATE
     Indication: METASTATIC RENAL CELL CARCINOMA
     Dosage: 50 MG, CYCLIC (CYCLE 4X2)
     Route: 048
     Dates: start: 201508, end: 201512
  5. DIAMICRON [Concomitant]
     Active Substance: GLICLAZIDE
     Indication: DIABETES MELLITUS
     Dosage: 1 TABLET (30MG) AFTER BREAKFAST

REACTIONS (6)
  - Varicose vein ruptured [Recovered/Resolved]
  - Dry skin [Unknown]
  - Hypoaesthesia [Recovered/Resolved]
  - Aphthous ulcer [Recovered/Resolved]
  - Skin ulcer [Unknown]
  - Dysentery [Recovered/Resolved]

NARRATIVE: CASE EVENT DATE: 201508
